FAERS Safety Report 5609901-X (Version None)
Quarter: 2008Q1

REPORT INFORMATION
  Report Type: 
  Country: None (occurrence: None)
  Receive Date: 20080131
  Receipt Date: 20080121
  Transmission Date: 20080703
  Serious: Yes (Hospitalization)
  Sender: FDA-Public Use
  Company Number: DE-PFIZER INC-2008003087

PATIENT
  Sex: Female
  Weight: 70 kg

DRUGS (1)
  1. XALATAN [Suspect]
     Indication: GLAUCOMA
     Route: 047
     Dates: start: 20071210, end: 20071229

REACTIONS (4)
  - EYE IRRITATION [None]
  - EYE SWELLING [None]
  - HYPERSENSITIVITY [None]
  - REACTION TO PRESERVATIVES [None]
